FAERS Safety Report 15505635 (Version 1)
Quarter: 2018Q4

REPORT INFORMATION
  Report Type: Spontaneous
  Country: HU (occurrence: HU)
  Receive Date: 20181016
  Receipt Date: 20181016
  Transmission Date: 20190205
  Serious: Yes (Other)
  Sender: FDA-Public Use
  Company Number: HU-ACCORD-073434

PATIENT
  Age: 52 Year
  Sex: Male

DRUGS (11)
  1. NEO-FERRO-FOLGAMMA [Concomitant]
     Indication: ANAEMIA PROPHYLAXIS
     Route: 048
  2. VECTIBIX [Concomitant]
     Active Substance: PANITUMUMAB
     Indication: COLON CANCER
     Route: 041
     Dates: start: 20170719
  3. LEUCOVORIN TEVA [Concomitant]
     Indication: COLON CANCER
     Dosage: 400 MG TWO CONSECUTIVE DAYS
     Route: 040
     Dates: start: 20170616
  4. FLUOROURACIL ACCORD [Concomitant]
     Active Substance: FLUOROURACIL
     Indication: COLON CANCER
     Dosage: 800 MG TWO CONSECUTIVE DAYS
     Route: 040
     Dates: start: 20170616
  5. COLECALCIFEROL [Concomitant]
     Active Substance: CHOLECALCIFEROL
     Indication: PROPHYLAXIS
     Route: 048
  6. OXALIPLATIN. [Suspect]
     Active Substance: OXALIPLATIN
     Indication: COLON CANCER
     Dosage: PLANNED DOSE 140 MG
     Route: 042
     Dates: start: 20170616, end: 20180103
  7. SOLU-MEDROL [Concomitant]
     Active Substance: METHYLPREDNISOLONE SODIUM SUCCINATE
     Indication: PREMEDICATION
     Route: 040
  8. MILGAMMA [Concomitant]
     Active Substance: VITAMIN B
     Indication: PROPHYLAXIS
     Route: 048
  9. SUPRASTIN [Concomitant]
     Active Substance: CHLOROPYRAMINE HYDROCHLORIDE
     Indication: PREMEDICATION
     Route: 040
  10. FRAXIPARINE [Concomitant]
     Active Substance: NADROPARIN CALCIUM
     Indication: THROMBOSIS PROPHYLAXIS
     Route: 058
  11. ONDANSETRON [Concomitant]
     Active Substance: ONDANSETRON
     Indication: PREMEDICATION
     Route: 040

REACTIONS (2)
  - Rash macular [Recovered/Resolved]
  - Skin tightness [Recovered/Resolved]

NARRATIVE: CASE EVENT DATE: 20180103
